FAERS Safety Report 4916829-7 (Version None)
Quarter: 2006Q1

REPORT INFORMATION
  Report Type: 
  Country: None (occurrence: None)
  Receive Date: 20060216
  Receipt Date: 20060216
  Transmission Date: 20060701
  Serious: Yes (Other)
  Sender: FDA-Public Use
  Company Number: None

PATIENT
  Age: 57 Year
  Sex: Male
  Weight: 95.2554 kg

DRUGS (3)
  1. LEVITRA [Suspect]
     Indication: DIABETES MELLITUS
     Dosage: 10 MG ONCE PO
     Route: 048
  2. LEVITRA [Suspect]
     Indication: ERECTILE DYSFUNCTION
     Dosage: 10 MG ONCE PO
     Route: 048
  3. SEROQUEL [Suspect]
     Indication: ANXIETY
     Dosage: 100 MG QHS PO [YEARS]
     Route: 048

REACTIONS (2)
  - DRUG INTERACTION [None]
  - HEART RATE INCREASED [None]
